FAERS Safety Report 6780766 (Version 2)
Quarter: 2013Q2

REPORT INFORMATION
  Report Type: Spontaneous
  Country: US (occurrence: US)
  Receive Date: 20081007
  Receipt Date: 20130612
  Transmission Date: 20140414
  Serious: Yes (Hospitalization, Other)
  Sender: FDA-Public Use
  Company Number: US-ASTRAZENECA-2008UW04140

PATIENT
  Age: 76 Year
  Sex: Female
  Weight: 66.7 kg

DRUGS (8)
  1. ARIMIDEX [Suspect]
     Indication: BREAST CANCER
     Dosage: 1 MG
     Route: 048
     Dates: start: 20061116
  2. ATACAND [Suspect]
     Indication: HYPERTENSION
     Route: 048
     Dates: start: 1991
  3. TAMOXIFEN [Suspect]
     Indication: BREAST CANCER
     Route: 048
     Dates: end: 20120702
  4. ZOLOFT [Concomitant]
  5. LORAZAPAM [Concomitant]
     Dosage: 0.5 MG THREE TIMES DAILY AS NEEDED
  6. ASPIRIN [Concomitant]
     Indication: PROPHYLAXIS
  7. AXID [Concomitant]
  8. BONIVA [Concomitant]
     Indication: BONE DISORDER

REACTIONS (22)
  - Cataract [Recovered/Resolved]
  - Breast cancer [Recovered/Resolved]
  - Arthropathy [Unknown]
  - Mood altered [Unknown]
  - Anxiety [Unknown]
  - Chest pain [Unknown]
  - Cough [Unknown]
  - Depression [Unknown]
  - Chills [Unknown]
  - Depressed mood [Not Recovered/Not Resolved]
  - Bone disorder [Unknown]
  - Crying [Not Recovered/Not Resolved]
  - Body height decreased [Not Recovered/Not Resolved]
  - Dehydration [Unknown]
  - Weight decreased [Unknown]
  - Abdominal pain upper [Recovered/Resolved]
  - Memory impairment [Not Recovered/Not Resolved]
  - Anger [Unknown]
  - Headache [Unknown]
  - Alopecia [Unknown]
  - Nausea [Unknown]
  - Hot flush [Unknown]
